FAERS Safety Report 6714518-X (Version None)
Quarter: 2010Q2

REPORT INFORMATION
  Report Type: 
  Country: None (occurrence: None)
  Receive Date: 20100506
  Receipt Date: 20100429
  Transmission Date: 20101027
  Serious: Yes (Other)
  Sender: FDA-Public Use
  Company Number: US-GILEAD-2010-0028584

PATIENT
  Sex: Female

DRUGS (14)
  1. LETAIRIS [Suspect]
     Indication: PULMONARY ARTERIAL HYPERTENSION
     Route: 048
     Dates: start: 20100323, end: 20100421
  2. REVATIO [Concomitant]
     Indication: PULMONARY ARTERIAL HYPERTENSION
  3. ASPIRIN [Concomitant]
  4. FUROSEMIDE [Concomitant]
  5. LISINOPRIL [Concomitant]
  6. ADVAIR DISKUS 100/50 [Concomitant]
  7. DIGOXIN [Concomitant]
  8. LOVASTATIN [Concomitant]
  9. OMEPRAZOLE [Concomitant]
  10. PREDNISONE [Concomitant]
  11. SUDAFED 12 HOUR [Concomitant]
  12. POTASSIUM CHLORIDE [Concomitant]
  13. FISH OIL [Concomitant]
  14. CALCIUM [Concomitant]

REACTIONS (5)
  - BLOOD PRESSURE DECREASED [None]
  - DYSPNOEA [None]
  - OEDEMA [None]
  - OXYGEN SATURATION DECREASED [None]
  - PNEUMONIA [None]
